FAERS Safety Report 21648107 (Version 4)
Quarter: 2024Q1

REPORT INFORMATION
  Report Type: Spontaneous
  Country: US (occurrence: US)
  Receive Date: 20221128
  Receipt Date: 20240117
  Transmission Date: 20240410
  Serious: Yes (Other)
  Sender: FDA-Public Use
  Company Number: US-JNJFOC-20221148124

PATIENT
  Age: 5 Decade
  Sex: Female

DRUGS (9)
  1. ELMIRON [Suspect]
     Active Substance: PENTOSAN POLYSULFATE SODIUM
     Indication: Cystitis interstitial
     Dosage: 6, 100 MG CAPSULES FOR A TOTAL OF 600 MG A DAY
     Route: 048
     Dates: start: 1996, end: 201103
  2. ELMIRON [Suspect]
     Active Substance: PENTOSAN POLYSULFATE SODIUM
     Dosage: 4, 100 MG CAPSULES FOR A TOTAL OF 400 MG A DAY
     Route: 048
     Dates: start: 20110302, end: 201104
  3. ELMIRON [Suspect]
     Active Substance: PENTOSAN POLYSULFATE SODIUM
     Dosage: 6, 100 MG CAPSULES FOR A TOTAL OF 600 MG A DAY
     Route: 048
     Dates: start: 201104, end: 201805
  4. ELMIRON [Suspect]
     Active Substance: PENTOSAN POLYSULFATE SODIUM
     Dosage: 4, 100 MG CAPSULES FOR A TOTAL OF 400 MG A DAY
     Route: 048
     Dates: start: 2018, end: 202105
  5. ELMIRON [Suspect]
     Active Substance: PENTOSAN POLYSULFATE SODIUM
     Route: 048
     Dates: end: 2021
  6. ELMIRON [Suspect]
     Active Substance: PENTOSAN POLYSULFATE SODIUM
     Route: 048
     Dates: start: 2022
  7. HYDROCHLOROTHIAZIDE [Concomitant]
     Active Substance: HYDROCHLOROTHIAZIDE
     Indication: Fluid retention
     Dosage: MULTIPLE COURSES AS NEEDED
     Dates: start: 19800101
  8. LEVOTHYROXINE [Concomitant]
     Active Substance: LEVOTHYROXINE\LEVOTHYROXINE SODIUM
     Indication: Thyroid therapy
     Dosage: 0.15 MG (150MCG) /SYNTHROID
  9. METHYLPREDNISOLONE [Concomitant]
     Active Substance: METHYLPREDNISOLONE
     Indication: Arthritis
     Dosage: 4MG DOSPAK 21^S
     Dates: start: 20150108, end: 2015

REACTIONS (4)
  - Dry age-related macular degeneration [Unknown]
  - Pigmentary maculopathy [Not Recovered/Not Resolved]
  - Drug ineffective [Unknown]
  - Off label use [Unknown]

NARRATIVE: CASE EVENT DATE: 19960101
